FAERS Safety Report 22602197 (Version 1)
Quarter: 2023Q2

REPORT INFORMATION
  Report Type: Report from Study
  Country: US (occurrence: US)
  Receive Date: 20230614
  Receipt Date: 20230614
  Transmission Date: 20230721
  Serious: Yes (Other)
  Sender: FDA-Public Use
  Company Number: US-BAUSCH-BL-2022-021952

PATIENT
  Age: 49 Year
  Sex: Female

DRUGS (2)
  1. SILIQ [Suspect]
     Active Substance: BRODALUMAB
     Indication: Psoriasis
     Dosage: INJECT 210MG SUBCUTANEOUSLY ON WEEK 0,1 AND 2 AS DIRECTED
     Route: 058
     Dates: start: 202207
  2. ARMOUR THYROID [Suspect]
     Active Substance: THYROID, PORCINE
     Indication: Product used for unknown indication
     Route: 065

REACTIONS (12)
  - Mouth haemorrhage [Unknown]
  - Feeling abnormal [Recovered/Resolved]
  - Alopecia [Recovered/Resolved]
  - Skin weeping [Recovered/Resolved]
  - Skin mass [Recovered/Resolved]
  - Anxiety [Unknown]
  - Depression [Unknown]
  - Oral pain [Unknown]
  - Gingival swelling [Unknown]
  - Skin infection [Recovered/Resolved]
  - Candida infection [Recovered/Resolved]
  - Pruritus [Recovered/Resolved]

NARRATIVE: CASE EVENT DATE: 20220101
